FAERS Safety Report 8806706 (Version 2)
Quarter: 2012Q4

REPORT INFORMATION
  Report Type: 
  Country: TR (occurrence: TR)
  Receive Date: 20120925
  Receipt Date: 20121226
  Transmission Date: 20130627
  Serious: No
  Sender: FDA-Public Use
  Company Number: PHHY2012TR039796

PATIENT
  Age: 49 Year
  Sex: Female

DRUGS (3)
  1. TASIGNA [Suspect]
     Indication: CHRONIC MYELOID LEUKAEMIA
     Dosage: 400 mg, daily
     Route: 048
     Dates: start: 20100713, end: 201007
  2. TASIGNA [Suspect]
     Dosage: 800 mg, daily
     Route: 048
  3. TASIGNA [Suspect]
     Dosage: 400 mg, daily
     Route: 048

REACTIONS (6)
  - Abdominal pain [Unknown]
  - Diarrhoea [Unknown]
  - Weight decreased [Unknown]
  - Overdose [Recovered/Resolved]
  - Malaise [Recovered/Resolved]
  - Pain in extremity [Recovered/Resolved]
